FAERS Safety Report 6250047-8 (Version None)
Quarter: 2009Q2

REPORT INFORMATION
  Report Type: 
  Country: None (occurrence: None)
  Receive Date: 20090625
  Receipt Date: 20090616
  Transmission Date: 20091009
  Serious: Yes (Hospitalization)
  Sender: FDA-Public Use
  Company Number: GP-09-06-0011

PATIENT
  Age: 25 Year
  Sex: Female

DRUGS (5)
  1. LAMOTRIGINE [Suspect]
     Indication: GENERALISED NON-CONVULSIVE EPILEPSY
     Dosage: 25 MG ONCE DAILY
  2. AMOXICILLIN [Concomitant]
  3. PHENYTOIN [Concomitant]
  4. RABEPRAZOLE SODIUM [Concomitant]
  5. LEVONORGESTREL + ETHINYL ESTRADIOL [Concomitant]

REACTIONS (5)
  - CONJUNCTIVITIS [None]
  - DYSAESTHESIA [None]
  - MENINGITIS VIRAL [None]
  - MYALGIA [None]
  - VITH NERVE PARALYSIS [None]
